FAERS Safety Report 14988071 (Version 2)
Quarter: 2019Q2

REPORT INFORMATION
  Report Type: Spontaneous
  Country: US (occurrence: US)
  Receive Date: 20180608
  Receipt Date: 20190417
  Transmission Date: 20190711
  Serious: Yes (Other)
  Sender: FDA-Public Use
  Company Number: US-PFIZER INC-2018231494

PATIENT
  Age: 61 Year
  Sex: Male
  Weight: 59 kg

DRUGS (2)
  1. GABAPENTIN. [Suspect]
     Active Substance: GABAPENTIN
     Indication: NEUROPATHY PERIPHERAL
     Dosage: 300 MG, 1X/DAY
     Route: 048
  2. GABAPENTIN. [Suspect]
     Active Substance: GABAPENTIN
     Indication: NEURALGIA

REACTIONS (10)
  - Fatigue [Recovered/Resolved]
  - Atrial fibrillation [Unknown]
  - Palpitations [Unknown]
  - Drug ineffective for unapproved indication [Unknown]
  - Lyme disease [Unknown]
  - Cardiac disorder [Unknown]
  - Gait disturbance [Unknown]
  - Dysstasia [Unknown]
  - Heart rate irregular [Recovered/Resolved]
  - Dyspnoea [Recovered/Resolved]
